FAERS Safety Report 19402103 (Version 1)
Quarter: 2021Q2

REPORT INFORMATION
  Report Type: Spontaneous
  Country: CA (occurrence: CA)
  Receive Date: 20210611
  Receipt Date: 20210611
  Transmission Date: 20210717
  Serious: Yes (Other)
  Sender: FDA-Public Use
  Company Number: CA-JNJFOC-20210617476

PATIENT
  Age: 69 Year
  Sex: Female
  Weight: 70 kg

DRUGS (2)
  1. PREDNISONE. [Concomitant]
     Active Substance: PREDNISONE
  2. INFLIXIMAB, RECOMBINANT [Suspect]
     Active Substance: INFLIXIMAB
     Indication: COLITIS ULCERATIVE
     Route: 042

REACTIONS (4)
  - Urticaria [Recovered/Resolved]
  - Peripheral swelling [Recovered/Resolved]
  - Condition aggravated [Recovered/Resolved]
  - Neuropathy peripheral [Recovered/Resolved]
